FAERS Safety Report 22380981 (Version 1)
Quarter: 2023Q2

REPORT INFORMATION
  Report Type: Report from Study
  Country: DE (occurrence: DE)
  Receive Date: 20230530
  Receipt Date: 20230530
  Transmission Date: 20230721
  Serious: Yes (Hospitalization)
  Sender: FDA-Public Use
  Company Number: DE-ABBVIE-5183172

PATIENT
  Sex: Female
  Weight: 58 kg

DRUGS (2)
  1. CARBIDOPA\LEVODOPA [Suspect]
     Active Substance: CARBIDOPA\LEVODOPA
     Indication: Parkinson^s disease
     Dosage: MD: 8.0 ML, CRD: 3.9 ML/H, ED: 2.0 ML?STOP DATE 2023
     Route: 050
     Dates: start: 20230321
  2. CARBIDOPA\LEVODOPA [Suspect]
     Active Substance: CARBIDOPA\LEVODOPA
     Dosage: MD: 8.0 ML; CRD: 4.0 ML/H; ED: 2.0 ML?START DATE 2023
     Route: 050

REACTIONS (4)
  - General physical health deterioration [Recovered/Resolved]
  - Stoma site erythema [Not Recovered/Not Resolved]
  - Device loosening [Recovered/Resolved]
  - Stoma site discharge [Recovered/Resolved]

NARRATIVE: CASE EVENT DATE: 20230101
